FAERS Safety Report 22261017 (Version 1)
Quarter: 2023Q2

REPORT INFORMATION
  Report Type: Spontaneous
  Country: GB (occurrence: GB)
  Receive Date: 20230427
  Receipt Date: 20230427
  Transmission Date: 20230721
  Serious: Yes (Disabling, Other)
  Sender: FDA-Public Use
  Company Number: None

PATIENT
  Age: 86 Year
  Sex: Male
  Weight: 68 kg

DRUGS (16)
  1. CITALOPRAM [Suspect]
     Active Substance: CITALOPRAM HYDROBROMIDE
     Indication: Ill-defined disorder
     Dosage: UNK
     Route: 065
     Dates: start: 20230406
  2. CITALOPRAM [Concomitant]
     Active Substance: CITALOPRAM HYDROBROMIDE
     Indication: Ill-defined disorder
     Dosage: OD MANE (START DATE 18-APR-2023)
     Route: 065
     Dates: end: 20230418
  3. DABIGATRAN ETEXILATE [Concomitant]
     Active Substance: DABIGATRAN ETEXILATE
     Indication: Ill-defined disorder
     Dosage: 1 DOSAGE FORM, BID (1 TO BE TAKEN TWICE DAILY)
     Route: 065
     Dates: start: 20221007
  4. DIGOXIN [Concomitant]
     Active Substance: DIGOXIN
     Indication: Ill-defined disorder
     Dosage: EVERY DAY TO BE TAKEN EACH MORNING
     Route: 065
     Dates: start: 20221007
  5. FINASTERIDE [Concomitant]
     Active Substance: FINASTERIDE
     Indication: Ill-defined disorder
     Dosage: OD MANE
     Route: 065
     Dates: start: 20221007
  6. FUROSEMIDE [Concomitant]
     Active Substance: FUROSEMIDE
     Indication: Ill-defined disorder
     Dosage: OD MANE
     Route: 065
     Dates: start: 20230116
  7. FYBOGEL [Concomitant]
     Active Substance: HERBALS\PLANTAGO OVATA SEED
     Indication: Ill-defined disorder
     Dosage: 1 DOSAGE FORM, BID (ONE TWICE A DAY)
     Route: 065
     Dates: start: 20221007
  8. LACTULOSE [Concomitant]
     Active Substance: LACTULOSE
     Indication: Ill-defined disorder
     Dosage: 15 MILLILITER, BID (TWICE DAILY) (START DATE 18-APR-2023)
     Route: 065
  9. LOSARTAN [Concomitant]
     Active Substance: LOSARTAN
     Indication: Ill-defined disorder
     Dosage: 1 DOSAGE FORM, QD (TAKE ONE MORNING)
     Route: 065
     Dates: start: 20221007
  10. MEMANTINE [Concomitant]
     Active Substance: MEMANTINE
     Indication: Ill-defined disorder
     Dosage: 1 DOSAGE FORM, QD (1 IN THE EVENING)
     Route: 065
     Dates: start: 20230317
  11. OMEPRAZOLE [Concomitant]
     Active Substance: OMEPRAZOLE
     Indication: Ill-defined disorder
     Dosage: 2 DOSAGE FORM, QD (TWO CAPSULES A DAY TO BE TAKEN EACH MORNING)
     Route: 065
     Dates: start: 20221007
  12. ACETAMINOPHEN [Concomitant]
     Active Substance: ACETAMINOPHEN
     Indication: Ill-defined disorder
     Dosage: 2 DOSAGE FORM, QID (2 TO BE TAKEN FOUR TIMES DAILY WHEN REQUIRED)
     Route: 065
     Dates: start: 20221007
  13. CALCIUM CARBONATE\SODIUM ALGINATE\SODIUM BICARBONATE [Concomitant]
     Active Substance: CALCIUM CARBONATE\SODIUM ALGINATE\SODIUM BICARBONATE
     Indication: Ill-defined disorder
     Dosage: 10 MILLILITER, QID (2X5ML SPOON 4 TIMES/DAY)
     Route: 065
     Dates: start: 20221007
  14. SIMVASTATIN [Concomitant]
     Active Substance: SIMVASTATIN
     Indication: Ill-defined disorder
     Dosage: 1 DOSAGE FORM, QD (TAKE ONE EACH NIGHT)
     Route: 065
     Dates: start: 20221007
  15. VENLAFAXINE [Concomitant]
     Active Substance: VENLAFAXINE HYDROCHLORIDE
     Indication: Ill-defined disorder
     Dosage: OD MANE (START DATE 18-APR-2023)
     Route: 065
  16. ZOPICLONE [Concomitant]
     Active Substance: ZOPICLONE
     Indication: Ill-defined disorder
     Dosage: 1 DOSAGE FORM (TAKE ONE AT NIGHT AS REQUIRED)
     Route: 065
     Dates: start: 20221007

REACTIONS (1)
  - Circulatory collapse [Recovered/Resolved]

NARRATIVE: CASE EVENT DATE: 20230406
